FAERS Safety Report 4742175-0 (Version None)
Quarter: 2005Q3

REPORT INFORMATION
  Report Type: 
  Country: None (occurrence: None)
  Receive Date: 20050811
  Receipt Date: 20050309
  Transmission Date: 20060218
  Serious: No
  Sender: FDA-Public Use
  Company Number: US-GLAXOSMITHKLINE-A0549037A

PATIENT
  Age: 51 Year
  Sex: Male

DRUGS (5)
  1. PAXIL CR [Suspect]
     Indication: DEPRESSION
     Dosage: 37.5MG PER DAY
     Route: 048
  2. VITAMINS [Concomitant]
  3. TEMAZEPAM [Concomitant]
     Route: 065
  4. LORAZEPAM [Concomitant]
     Route: 065
     Dates: end: 20050311
  5. VALIUM [Concomitant]
     Indication: SLEEP DISORDER
     Route: 065
     Dates: start: 20050312

REACTIONS (2)
  - MALAISE [None]
  - TINNITUS [None]
